FAERS Safety Report 12284113 (Version 1)
Quarter: 2016Q2

REPORT INFORMATION
  Report Type: Report from Study
  Country: JP (occurrence: JP)
  Receive Date: 20160419
  Receipt Date: 20160419
  Transmission Date: 20160815
  Serious: Yes (Death)
  Sender: FDA-Public Use
  Company Number: JP-MYLANLABS-2016M1015907

PATIENT

DRUGS (6)
  1. METHYLPREDNISOLONE. [Suspect]
     Active Substance: METHYLPREDNISOLONE
     Dosage: 500MG/DAY ON DAY OF OPERATION; DOSE WAS THEN TAPERED TO 6-8MG/DAY WITHIN 1-2 MONTHS POSTTRANSPLANT
     Route: 065
  2. MYCOPHENOLATE MOFETIL. [Suspect]
     Active Substance: MYCOPHENOLATE MOFETIL
     Indication: IMMUNOSUPPRESSANT DRUG THERAPY
     Dosage: 2000MG/DAY FOR 7 DAYS PRIOR TO TRANSPLANT; 1000-1500MG/DAY 1 MONTH POSTOPERATIVELY BASIS WBC COUNT
     Route: 065
  3. TACROLIMUS. [Suspect]
     Active Substance: TACROLIMUS
     Dosage: 0.15 MG/KG*DAY FOR 7 DAYS PRIOR TO TRANSPLANT
     Route: 065
  4. MYCOPHENOLATE MOFETIL. [Suspect]
     Active Substance: MYCOPHENOLATE MOFETIL
     Dosage: 1000-1500MG/DAY 1 MONTH POSTOPERATIVELY BASIS WBC COUNT
     Route: 065
  5. METHYLPREDNISOLONE. [Suspect]
     Active Substance: METHYLPREDNISOLONE
     Indication: IMMUNOSUPPRESSANT DRUG THERAPY
     Dosage: 20MG/DAY FOR 7 DAYS BEFORE TRANSPLANT AND 500 MG/DAY ON THE DAY OF THE OPERATION
     Route: 065
  6. TACROLIMUS. [Suspect]
     Active Substance: TACROLIMUS
     Indication: IMMUNOSUPPRESSANT DRUG THERAPY
     Dosage: TROUGH LEVEL 8-12NG/ML FOR 1-2 MO POSTTRANSPLANT AND AT 7-9NG/ML THEREAFTER
     Route: 065

REACTIONS (2)
  - Renal cell carcinoma [Fatal]
  - Malignant neoplasm progression [Fatal]
